FAERS Safety Report 23332006 (Version 1)
Quarter: 2023Q4

REPORT INFORMATION
  Report Type: Spontaneous
  Country: None (occurrence: FR)
  Receive Date: 20231222
  Receipt Date: 20231222
  Transmission Date: 20240109
  Serious: Yes (Disabling, Other)
  Sender: FDA-Public Use
  Company Number: FR-B.Braun Medical Inc.-2149710

PATIENT
  Age: 61 Year
  Sex: Male
  Weight: 74 kg

DRUGS (10)
  1. HEPARIN SODIUM IN DEXTROSE [Suspect]
     Active Substance: HEPARIN SODIUM
     Indication: Peripheral artery stent insertion
     Route: 042
  2. HEPARIN SODIUM IN DEXTROSE [Suspect]
     Active Substance: HEPARIN SODIUM
     Indication: Peripheral artery bypass
  3. HEPARIN SODIUM IN DEXTROSE [Suspect]
     Active Substance: HEPARIN SODIUM
     Indication: Endarterectomy
  4. ENOXAPARIN [Suspect]
     Active Substance: ENOXAPARIN
  5. KARDEGIC [Suspect]
     Active Substance: ASPIRIN DL-LYSINE
  6. KETOPROFEN [Suspect]
     Active Substance: KETOPROFEN
  7. ATORVASTATIN [Concomitant]
     Active Substance: ATORVASTATIN
  8. BISOPROLOL. [Concomitant]
     Active Substance: BISOPROLOL FUMARATE
  9. Pantprazole [Concomitant]
  10. RAMIPRIL [Concomitant]
     Active Substance: RAMIPRIL

REACTIONS (3)
  - Subarachnoid haemorrhage [None]
  - Extradural haematoma [None]
  - Quadriplegia [None]
